FAERS Safety Report 18457897 (Version 1)
Quarter: 2020Q4

REPORT INFORMATION
  Report Type: Spontaneous
  Country: CL (occurrence: CL)
  Receive Date: 20201103
  Receipt Date: 20201103
  Transmission Date: 20210114
  Serious: Yes (Hospitalization)
  Sender: FDA-Public Use
  Company Number: CL-CELLTRION-2020-CL-000006

PATIENT
  Age: 28 Year
  Sex: Male

DRUGS (2)
  1. LAMOTRIGINE (NON-SPECIFIC) [Suspect]
     Active Substance: LAMOTRIGINE
     Indication: EPILEPSY
     Dosage: 25 MG TITRATION UP TO 100 MG DAILY
  2. CLOBAZAM. [Concomitant]
     Active Substance: CLOBAZAM
     Dosage: 5 MG DAILY

REACTIONS (1)
  - Acute febrile neutrophilic dermatosis [Recovered/Resolved]
